FAERS Safety Report 13942133 (Version 3)
Quarter: 2017Q4

REPORT INFORMATION
  Report Type: Spontaneous
  Country: AR (occurrence: AR)
  Receive Date: 20170906
  Receipt Date: 20171018
  Transmission Date: 20180320
  Serious: Yes (Hospitalization, Other)
  Sender: FDA-Public Use
  Company Number: AR-ALLERGAN-1749662US

PATIENT
  Age: 50 Year
  Sex: Male

DRUGS (4)
  1. VANCOMYCIN HCL [Suspect]
     Active Substance: VANCOMYCIN HYDROCHLORIDE
     Indication: ENDOCARDITIS STAPHYLOCOCCAL
     Dosage: UNK
     Route: 065
  2. VANCOMYCIN HCL [Suspect]
     Active Substance: VANCOMYCIN HYDROCHLORIDE
     Dosage: UNK
     Route: 065
     Dates: start: 20170714, end: 20170726
  3. CEFAZOLIN [Concomitant]
     Active Substance: CEFAZOLIN
  4. CEFTAROLINE FOSAMIL UNK [Suspect]
     Active Substance: CEFTAROLINE FOSAMIL
     Indication: ENDOCARDITIS STAPHYLOCOCCAL
     Dosage: 600 MG, Q8HR
     Route: 042
     Dates: start: 20170714, end: 20170726

REACTIONS (3)
  - Muscle abscess [Unknown]
  - Off label use [Unknown]
  - Condition aggravated [Recovered/Resolved]

NARRATIVE: CASE EVENT DATE: 20160716
